FAERS Safety Report 21597761 (Version 4)
Quarter: 2022Q4

REPORT INFORMATION
  Report Type: Report from Study
  Country: IT (occurrence: IT)
  Receive Date: 20221115
  Receipt Date: 20221207
  Transmission Date: 20230112
  Serious: Yes (Death, Hospitalization, Other)
  Sender: FDA-Public Use
  Company Number: IT-BRISTOL-MYERS SQUIBB COMPANY-2022-082534

PATIENT
  Age: 65 Year
  Sex: Female

DRUGS (14)
  1. POMALIDOMIDE [Suspect]
     Active Substance: POMALIDOMIDE
     Indication: Plasma cell myeloma refractory
     Dosage: CYC (DAY 1-14 OF 21 DAY OF CYCLE)
     Route: 048
     Dates: start: 20211008, end: 20211021
  2. POMALIDOMIDE [Suspect]
     Active Substance: POMALIDOMIDE
     Dosage: CYC (DAY 1-14 OF 21 DAY OF CYCLE)
     Route: 048
     Dates: start: 20211029, end: 20211111
  3. POMALIDOMIDE [Suspect]
     Active Substance: POMALIDOMIDE
     Dosage: CYC (DAY 1-14 OF 21 DAY OF CYCLE)
     Route: 048
     Dates: start: 20220318
  4. DEXAMETHASONE [Suspect]
     Active Substance: DEXAMETHASONE
     Indication: Plasma cell myeloma refractory
     Dosage: DAY 1, 20 MG CYC (ON THE DAY OF AND DAY AFTER BORTEXOMIB)
     Route: 048
     Dates: start: 20211008, end: 20211019
  5. DEXAMETHASONE [Suspect]
     Active Substance: DEXAMETHASONE
     Dosage: DAY 1, 20 MG CYC (ON THE DAY OF AND DAY AFTER BORTEXOMIB)
     Route: 048
     Dates: start: 20211029, end: 20211109
  6. DEXAMETHASONE [Suspect]
     Active Substance: DEXAMETHASONE
     Dosage: DAY 1, 20 MG CYC (ON THE DAY OF AND DAY AFTER BORTEXOMIB)
     Route: 048
     Dates: start: 20220318
  7. BORTEZOMIB [Suspect]
     Active Substance: BORTEZOMIB
     Indication: Plasma cell myeloma refractory
     Dosage: (DAY 1, 4, 8 AND 11 OF 21 DAY OF CYCLE) CYC
     Route: 058
     Dates: start: 20211008, end: 20211018
  8. BORTEZOMIB [Suspect]
     Active Substance: BORTEZOMIB
     Dosage: (DAY 1, 4, 8 AND 11 OF 21 DAY OF CYCLE) CYC
     Route: 058
     Dates: start: 20211020, end: 20211108
  9. BORTEZOMIB [Suspect]
     Active Substance: BORTEZOMIB
     Dosage: (DAY 1, 4, 8 AND 11 OF 21 DAY OF CYCLE) CYC
     Route: 058
     Dates: start: 20220318
  10. BACTRIM [Concomitant]
     Active Substance: SULFAMETHOXAZOLE\TRIMETHOPRIM
     Indication: Product used for unknown indication
     Route: 065
     Dates: start: 20211008
  11. ARIXTRA [Concomitant]
     Active Substance: FONDAPARINUX SODIUM
     Indication: Product used for unknown indication
     Route: 065
     Dates: start: 20211008
  12. LANSOPRAZOLE [Concomitant]
     Active Substance: LANSOPRAZOLE
     Indication: Product used for unknown indication
     Route: 065
     Dates: start: 20211008
  13. TRAMADOL HYDROCHLORIDE [Concomitant]
     Active Substance: TRAMADOL HYDROCHLORIDE
     Indication: Product used for unknown indication
     Route: 065
     Dates: start: 20220411
  14. ACYCLOVIR [Concomitant]
     Active Substance: ACYCLOVIR
     Indication: Product used for unknown indication
     Route: 065
     Dates: start: 20180207

REACTIONS (2)
  - Anaemia [Not Recovered/Not Resolved]
  - Pneumonia [Fatal]

NARRATIVE: CASE EVENT DATE: 20220527
